FAERS Safety Report 23842052 (Version 7)
Quarter: 2025Q2

REPORT INFORMATION
  Report Type: Spontaneous
  Country: IN (occurrence: IN)
  Receive Date: 20240510
  Receipt Date: 20250611
  Transmission Date: 20250716
  Serious: Yes (Hospitalization, Other)
  Sender: PFIZER
  Company Number: IN-PFIZER INC-PV202400056542

PATIENT
  Age: 67 Year
  Sex: Female
  Weight: 78.3 kg

DRUGS (9)
  1. LORLATINIB [Suspect]
     Active Substance: LORLATINIB
     Dosage: 100 MG, 1X/DAY
     Route: 048
     Dates: start: 20240317
  2. LORLATINIB [Suspect]
     Active Substance: LORLATINIB
     Dosage: 100 MG - ONE TAB ALTERNATE DAY X 3 WEEKS
     Route: 048
  3. LORLATINIB [Suspect]
     Active Substance: LORLATINIB
     Dosage: 100 MG, 1X/DAY 1HR AFTER FOOD
     Route: 048
  4. MEGASTY [Concomitant]
     Dosage: 160 MG, 1X/DAY
  5. RANITIDINE HYDROCHLORIDE [Concomitant]
     Active Substance: RANITIDINE HYDROCHLORIDE
     Indication: Hyperchlorhydria
  6. ROSUVASTATIN CALCIUM [Concomitant]
     Active Substance: ROSUVASTATIN CALCIUM
     Dosage: ONE 10 MG TABLET ONCE DAILY
  7. ROSUVASTATIN CALCIUM [Concomitant]
     Active Substance: ROSUVASTATIN CALCIUM
     Dosage: 20 MG-ONE TAB ONCE DAILY
  8. ONDANSETRON HYDROCHLORIDE [Concomitant]
     Active Substance: ONDANSETRON HYDROCHLORIDE
     Indication: Nausea
  9. ONDANSETRON HYDROCHLORIDE [Concomitant]
     Active Substance: ONDANSETRON HYDROCHLORIDE
     Indication: Vomiting

REACTIONS (9)
  - Cardiac failure congestive [Recovering/Resolving]
  - Ischaemia [Unknown]
  - Electrocardiogram QT prolonged [Unknown]
  - Blood triglycerides increased [Not Recovered/Not Resolved]
  - Cardiomegaly [Unknown]
  - Blood pressure systolic increased [Recovering/Resolving]
  - Oxygen saturation decreased [Recovering/Resolving]
  - Blood cholesterol increased [Unknown]
  - Off label use [Unknown]

NARRATIVE: CASE EVENT DATE: 20240427
